FAERS Safety Report 5579168-X (Version None)
Quarter: 2008Q1

REPORT INFORMATION
  Report Type: 
  Country: None (occurrence: None)
  Receive Date: 20080102
  Receipt Date: 20071226
  Transmission Date: 20080703
  Serious: Yes (Hospitalization, Disabling)
  Sender: FDA-Public Use
  Company Number: A0380991A

PATIENT
  Age: 30 Year
  Sex: Male
  Weight: 105 kg

DRUGS (12)
  1. ZYBAN [Suspect]
     Dosage: 150MG PER DAY
     Route: 048
     Dates: start: 20000121, end: 20020802
  2. WELLBUTRIN [Suspect]
     Indication: DRUG USE FOR UNKNOWN INDICATION
     Route: 048
  3. XANAX [Concomitant]
  4. PEPCID [Concomitant]
  5. NEXIUM [Concomitant]
  6. ATIVAN [Concomitant]
  7. ZYPREXA [Concomitant]
  8. SERZONE [Concomitant]
  9. GABITRIL [Concomitant]
  10. PROTONIX [Concomitant]
  11. ASACOL [Concomitant]
  12. LEXAPRO [Concomitant]

REACTIONS (50)
  - ABDOMINAL DISCOMFORT [None]
  - ABDOMINAL PAIN [None]
  - ABDOMINAL PAIN UPPER [None]
  - ABNORMAL BEHAVIOUR [None]
  - ADVERSE DRUG REACTION [None]
  - AGGRESSION [None]
  - ANXIETY [None]
  - ASTHENIA [None]
  - BURNING SENSATION [None]
  - CHEST DISCOMFORT [None]
  - COLD SWEAT [None]
  - CRYING [None]
  - DEPRESSION [None]
  - DIARRHOEA [None]
  - DISABILITY [None]
  - DISTURBANCE IN ATTENTION [None]
  - DIZZINESS [None]
  - DRUG INEFFECTIVE [None]
  - EAR PAIN [None]
  - ENERGY INCREASED [None]
  - FAECES DISCOLOURED [None]
  - GASTRITIS [None]
  - HEADACHE [None]
  - HYPERHIDROSIS [None]
  - HYPERVENTILATION [None]
  - IMPAIRED DRIVING ABILITY [None]
  - INSOMNIA [None]
  - IRRITABILITY [None]
  - MALAISE [None]
  - MANIA [None]
  - MEMORY IMPAIRMENT [None]
  - MOBILITY DECREASED [None]
  - MOOD ALTERED [None]
  - MOOD SWINGS [None]
  - MUSCLE SPASMS [None]
  - NERVOUSNESS [None]
  - NICOTINE DEPENDENCE [None]
  - PAIN [None]
  - PALPITATIONS [None]
  - PANIC ATTACK [None]
  - PARAESTHESIA [None]
  - PARANOIA [None]
  - PSYCHOTIC DISORDER [None]
  - PYREXIA [None]
  - RETCHING [None]
  - TEARFULNESS [None]
  - THINKING ABNORMAL [None]
  - TREMOR [None]
  - VOMITING [None]
  - WEIGHT DECREASED [None]
